FAERS Safety Report 10145782 (Version 1)
Quarter: 2014Q2

REPORT INFORMATION
  Report Type: Spontaneous
  Country: US (occurrence: None)
  Receive Date: 20140429
  Receipt Date: 20140429
  Transmission Date: 20141212
  Serious: Yes (Other)
  Sender: FDA-Public Use
  Company Number: 201404061

PATIENT
  Age: 50 Year
  Sex: Male

DRUGS (3)
  1. TESTOPEL [Suspect]
     Indication: BLOOD TESTOSTERONE DECREASED
     Dates: start: 201108
  2. ANDROGEL [Suspect]
     Indication: BLOOD TESTOSTERONE DECREASED
     Dates: start: 200908, end: 201001
  3. DEPO-TESTOSTERONE [Suspect]
     Indication: BLOOD TESTOSTERONE DECREASED
     Dates: start: 201002, end: 201107

REACTIONS (1)
  - Myocardial infarction [None]
